FAERS Safety Report 4281768-4 (Version None)
Quarter: 2004Q1

REPORT INFORMATION
  Report Type: 
  Country: None (occurrence: None)
  Receive Date: 20040129
  Receipt Date: 20040122
  Transmission Date: 20041129
  Serious: Yes (Hospitalization)
  Sender: FDA-Public Use
  Company Number: PHBS2004ES01100

PATIENT
  Age: 50 Year
  Sex: Female

DRUGS (4)
  1. VOLTAREN [Suspect]
     Dosage: 150 MG/DAY
     Route: 048
     Dates: start: 20030125, end: 20030129
  2. AUGMENTIN [Suspect]
     Dosage: 3 DF/DAY
     Route: 048
     Dates: start: 20030213, end: 20030316
  3. ALDACTONE [Suspect]
     Dosage: 200 MG/DAY
     Route: 048
     Dates: start: 20030129, end: 20030316
  4. ALDACTONE [Suspect]
     Dosage: 100 MG/DAY
     Dates: start: 20030319

REACTIONS (1)
  - ENCEPHALOPATHY [None]
